FAERS Safety Report 6770282-X (Version None)
Quarter: 2010Q2

REPORT INFORMATION
  Report Type: 
  Country: None (occurrence: None)
  Receive Date: 20100615
  Receipt Date: 20100607
  Transmission Date: 20101027
  Serious: Yes (Death, Hospitalization, Other)
  Sender: FDA-Public Use
  Company Number: JP-BRISTOL-MYERS SQUIBB COMPANY-15143381

PATIENT
  Age: 69 Year
  Sex: Female

DRUGS (2)
  1. VEPESID [Suspect]
     Indication: DIFFUSE LARGE B-CELL LYMPHOMA
     Route: 048
  2. PREDNISOLONE [Suspect]
     Indication: DIFFUSE LARGE B-CELL LYMPHOMA

REACTIONS (3)
  - DISSEMINATED INTRAVASCULAR COAGULATION [None]
  - SUBDURAL HAEMORRHAGE [None]
  - TUMOUR LYSIS SYNDROME [None]
